FAERS Safety Report 5749416-1 (Version None)
Quarter: 2008Q2

REPORT INFORMATION
  Report Type: 
  Country: None (occurrence: None)
  Receive Date: 20080527
  Receipt Date: 20080519
  Transmission Date: 20081010
  Serious: Yes (Hospitalization, Other)
  Sender: FDA-Public Use
  Company Number: US-ASTRAZENECA-2007UW07840

PATIENT
  Age: 58 Year
  Sex: Female
  Weight: 98.6 kg

DRUGS (2)
  1. SEROQUEL [Suspect]
     Indication: BIPOLAR DISORDER
     Route: 048
     Dates: start: 20030301, end: 20060401
  2. ABILIFY [Concomitant]
     Route: 048

REACTIONS (2)
  - PANCREATITIS [None]
  - TRACHEOSTOMY [None]
